FAERS Safety Report 15310959 (Version 1)
Quarter: 2018Q3

REPORT INFORMATION
  Report Type: Spontaneous
  Country: US (occurrence: US)
  Receive Date: 20180813
  Receipt Date: 20180813
  Transmission Date: 20181010
  Serious: Yes (Hospitalization, Disabling, Congenital Anomaly, Other)
  Sender: FDA-Public Use
  Company Number: None

PATIENT
  Age: 24 Year
  Sex: Female
  Weight: 79.38 kg

DRUGS (2)
  1. PPENATAL GUMMIES [Concomitant]
  2. KYLEENA [Suspect]
     Active Substance: LEVONORGESTREL

REACTIONS (9)
  - Uterine spasm [None]
  - Haemorrhagic ovarian cyst [None]
  - Pregnancy with contraceptive device [None]
  - Abortion spontaneous [None]
  - Affect lability [None]
  - Foetal death [None]
  - Abdominal pain [None]
  - Depression [None]
  - Maternal exposure during pregnancy [None]

NARRATIVE: CASE EVENT DATE: 20180715
